FAERS Safety Report 15112117 (Version 4)
Quarter: 2018Q3

REPORT INFORMATION
  Report Type: Report from Study
  Country: CH (occurrence: CH)
  Receive Date: 20180705
  Receipt Date: 20180808
  Transmission Date: 20181010
  Serious: Yes (Hospitalization)
  Sender: FDA-Public Use
  Company Number: CH-AMGEN-CHECT2018089871

PATIENT
  Age: 59 Year
  Sex: Male
  Weight: 84 kg

DRUGS (11)
  1. DOLOPHINE [Concomitant]
     Active Substance: METHADONE HYDROCHLORIDE
     Dosage: 10 GTT, UNK
     Route: 048
     Dates: start: 20170830
  2. FEIGENSIRUP [Concomitant]
     Dosage: UNK
     Route: 048
     Dates: start: 20180530, end: 20180602
  3. DAFALGAN [Concomitant]
     Active Substance: ACETAMINOPHEN
     Dosage: 1 G, UNK
     Route: 048
     Dates: start: 20180608, end: 20180704
  4. TALIMOGENE LAHERPAREPVEC [Suspect]
     Active Substance: TALIMOGENE LAHERPAREPVEC
     Indication: COLORECTAL CANCER
     Dosage: 2 ML, UNK
     Route: 026
     Dates: start: 20180517
  5. PARAGOL [Concomitant]
     Active Substance: MINERAL OIL\PHENOLPHTHALEIN
     Dosage: UNK
     Route: 048
     Dates: start: 20180530, end: 20180602
  6. PANTOPRAZOL [Concomitant]
     Active Substance: PANTOPRAZOLE SODIUM
     Dosage: 40 MG, UNK
     Route: 048
     Dates: start: 20160829
  7. TOREM [Concomitant]
     Active Substance: TORSEMIDE
     Dosage: 5 MG, UNK
     Route: 048
     Dates: start: 20180627
  8. LIDOCAIN [Concomitant]
     Active Substance: LIDOCAINE
     Dosage: 10 ML, UNK
     Route: 023
     Dates: start: 20180517, end: 20180627
  9. ATEZOLIZUMAB. [Suspect]
     Active Substance: ATEZOLIZUMAB
     Indication: COLORECTAL CANCER
     Dosage: 270 ML, UNK
     Route: 042
     Dates: start: 20180517
  10. VITAMIN D [Concomitant]
     Active Substance: CHOLECALCIFEROL
     Dosage: 8 GTT, UNK
     Route: 048
     Dates: start: 20170315
  11. XYZAL [Concomitant]
     Active Substance: LEVOCETIRIZINE DIHYDROCHLORIDE
     Dosage: 5 MG, UNK
     Route: 048
     Dates: start: 20180522, end: 20180522

REACTIONS (1)
  - Vena cava thrombosis [Unknown]

NARRATIVE: CASE EVENT DATE: 20180628
